FAERS Safety Report 15883424 (Version 1)
Quarter: 2019Q1

REPORT INFORMATION
  Report Type: Spontaneous
  Country: US (occurrence: US)
  Receive Date: 20190107
  Receipt Date: 20190107
  Transmission Date: 20190417
  Serious: No
  Sender: FDA-Public Use
  Company Number: None

PATIENT
  Age: 63 Year
  Sex: Female

DRUGS (2)
  1. IBRANCE [Suspect]
     Active Substance: PALBOCICLIB
     Dates: start: 201806
  2. LETROZOLE. [Concomitant]
     Active Substance: LETROZOLE

REACTIONS (3)
  - Product dose omission [None]
  - Nausea [None]
  - Malaise [None]

NARRATIVE: CASE EVENT DATE: 20190105
